FAERS Safety Report 19934498 (Version 1)
Quarter: 2021Q4

REPORT INFORMATION
  Report Type: Spontaneous
  Country: FI (occurrence: FI)
  Receive Date: 20211008
  Receipt Date: 20211008
  Transmission Date: 20220303
  Serious: Yes (Disabling)
  Sender: FDA-Public Use
  Company Number: None

PATIENT
  Age: 33 Year
  Sex: Male

DRUGS (2)
  1. CIPROFLOXACIN [Suspect]
     Active Substance: CIPROFLOXACIN
     Indication: Prostatitis
     Dosage: 1000 MG
     Route: 048
     Dates: start: 20210401, end: 20210415
  2. ALFUZOSIN [Concomitant]
     Active Substance: ALFUZOSIN
     Indication: Prostatitis
     Dosage: 10,MG,DAILY
     Route: 048
     Dates: start: 20210401

REACTIONS (15)
  - Fatigue [Not Recovered/Not Resolved]
  - Nightmare [Not Recovered/Not Resolved]
  - Emotional distress [Not Recovered/Not Resolved]
  - Myalgia [Not Recovered/Not Resolved]
  - Anxiety [Not Recovered/Not Resolved]
  - Libido decreased [Not Recovered/Not Resolved]
  - Asthenia [Not Recovered/Not Resolved]
  - Paraesthesia [Not Recovered/Not Resolved]
  - Muscle spasms [Not Recovered/Not Resolved]
  - Impaired work ability [Not Recovered/Not Resolved]
  - Insomnia [Not Recovered/Not Resolved]
  - Arthralgia [Not Recovered/Not Resolved]
  - Neuralgia [Not Recovered/Not Resolved]
  - Hypoaesthesia [Not Recovered/Not Resolved]
  - Heart rate increased [Not Recovered/Not Resolved]

NARRATIVE: CASE EVENT DATE: 20210415
